FAERS Safety Report 6377572-3 (Version None)
Quarter: 2009Q3

REPORT INFORMATION
  Report Type: 
  Country: None (occurrence: None)
  Receive Date: 20090923
  Receipt Date: 20090923
  Transmission Date: 20100115
  Serious: Yes (Hospitalization)
  Sender: FDA-Public Use
  Company Number: None

PATIENT
  Age: 67 Year
  Sex: Male
  Weight: 99.5 kg

DRUGS (12)
  1. ENOXAPARIN SODIUM [Suspect]
     Indication: DEEP VEIN THROMBOSIS
     Dosage: 150MG Q24H SC
     Route: 058
     Dates: start: 20090707, end: 20090729
  2. AMLODIPINE [Concomitant]
  3. BACTRIM DS [Concomitant]
  4. CELLCEPT [Concomitant]
  5. LANTUS [Concomitant]
  6. MGOX [Concomitant]
  7. MULTI-VIT [Concomitant]
  8. PREDNISONE TAB [Concomitant]
  9. RANITIDINE [Concomitant]
  10. TACROLIMUS [Concomitant]
  11. TOPROL-XL [Concomitant]
  12. VFEND [Concomitant]

REACTIONS (5)
  - BLOOD CREATININE INCREASED [None]
  - FALL [None]
  - HAEMATOMA [None]
  - HAEMOGLOBIN DECREASED [None]
  - WEIGHT DECREASED [None]
